FAERS Safety Report 14377943 (Version 5)
Quarter: 2018Q3

REPORT INFORMATION
  Report Type: Spontaneous
  Country: CA (occurrence: CA)
  Receive Date: 20180111
  Receipt Date: 20180810
  Transmission Date: 20181010
  Serious: Yes (Hospitalization)
  Sender: FDA-Public Use
  Company Number: CA-IPSEN BIOPHARMACEUTICALS, INC.-2018-00340

PATIENT
  Age: 70 Year
  Sex: Male
  Weight: 72.2 kg

DRUGS (8)
  1. SOMATULINE AUTOGEL 120MG [Suspect]
     Active Substance: LANREOTIDE ACETATE
     Indication: CARCINOID TUMOUR
     Dosage: 120 MG
     Route: 058
     Dates: start: 201606
  2. NOCDURMA [Concomitant]
     Indication: PROSTATOMEGALY
     Route: 048
     Dates: start: 20150919
  3. ROBAXACET [Concomitant]
     Active Substance: ACETAMINOPHEN\METHOCARBAMOL
     Indication: ARTHRALGIA
     Route: 048
     Dates: start: 20140111
  4. LX1606 [Concomitant]
     Indication: CARCINOID SYNDROME
     Route: 048
     Dates: start: 20140813, end: 20170923
  5. LX1606 [Concomitant]
     Route: 048
     Dates: start: 20170926
  6. QUESTRAN [Concomitant]
     Active Substance: CHOLESTYRAMINE
     Indication: CARCINOID TUMOUR
     Route: 048
     Dates: start: 201208
  7. SANDOZ?TAMSULOSINE [Concomitant]
     Indication: PROSTATOMEGALY
     Route: 048
     Dates: start: 2014
  8. COTAZYME ECS [Concomitant]
     Indication: CARCINOID TUMOUR
     Dosage: 4 TABLETS
     Route: 048
     Dates: start: 201207

REACTIONS (4)
  - Abdominal abscess [Recovered/Resolved]
  - Inappropriate schedule of drug administration [Unknown]
  - Abdominal wall abscess [Recovered/Resolved]
  - Procedural pain [Unknown]

NARRATIVE: CASE EVENT DATE: 2017
